FAERS Safety Report 5258491-2 (Version None)
Quarter: 2007Q1

REPORT INFORMATION
  Report Type: 
  Country: None (occurrence: None)
  Receive Date: 20070308
  Receipt Date: 20070302
  Transmission Date: 20070707
  Serious: Yes (Other)
  Sender: FDA-Public Use
  Company Number: US-AVENTIS-200711435US

PATIENT
  Sex: Female

DRUGS (1)
  1. KETEK [Suspect]
     Dosage: DOSE: 2 TABLETS
     Route: 048
     Dates: start: 20060401, end: 20060519

REACTIONS (5)
  - BLOOD BILIRUBIN INCREASED [None]
  - EYE DISORDER [None]
  - FATIGUE [None]
  - HEPATIC ENZYME INCREASED [None]
  - HEPATOCELLULAR DAMAGE [None]
